FAERS Safety Report 5310751-2 (Version None)
Quarter: 2007Q2

REPORT INFORMATION
  Report Type: 
  Country: None (occurrence: None)
  Receive Date: 20070428
  Receipt Date: 20070418
  Transmission Date: 20071010
  Serious: Yes (Hospitalization)
  Sender: FDA-Public Use
  Company Number: PL-PFIZER INC-2007028867

PATIENT
  Sex: Male
  Weight: 91 kg

DRUGS (23)
  1. SU-011,248 [Suspect]
     Indication: METASTATIC RENAL CELL CARCINOMA
     Route: 048
     Dates: start: 20050608, end: 20070226
  2. ENARENAL [Concomitant]
     Indication: HYPERTENSION
     Route: 048
     Dates: start: 20050621, end: 20060208
  3. AMLOPIN [Concomitant]
     Indication: HYPERTENSION
     Route: 048
     Dates: start: 20050701, end: 20060216
  4. TERTENSIF [Concomitant]
     Indication: HYPERTENSION
     Route: 048
     Dates: start: 20050701, end: 20060208
  5. LEXOTAN [Concomitant]
     Indication: ANXIETY
     Route: 048
  6. DURICEF [Concomitant]
     Indication: UPPER RESPIRATORY TRACT INFECTION
     Route: 048
     Dates: start: 20050923, end: 20050928
  7. BENZYDAMINE [Concomitant]
     Indication: UPPER RESPIRATORY TRACT INFECTION
     Dates: start: 20050923, end: 20050928
  8. DIPROSALIC [Concomitant]
     Indication: PALMAR-PLANTAR ERYTHRODYSAESTHESIA SYNDROME
  9. ZYRTEC [Concomitant]
     Indication: PALMAR-PLANTAR ERYTHRODYSAESTHESIA SYNDROME
  10. BETALOC [Concomitant]
     Indication: HYPERTENSION
     Route: 048
     Dates: start: 20060208, end: 20060216
  11. BENALAPRIL [Concomitant]
     Indication: HYPERTENSION
     Route: 048
     Dates: start: 20060208, end: 20060216
  12. TIALORID [Concomitant]
     Indication: HYPERTENSION
     Route: 048
     Dates: start: 20060208, end: 20070316
  13. KETOPROFEN [Concomitant]
     Indication: ARTHRALGIA
     Route: 048
     Dates: start: 20060316, end: 20060606
  14. LANSOPRAZOL [Concomitant]
     Indication: PROPHYLAXIS
     Route: 048
     Dates: start: 20070316, end: 20070316
  15. BETALOC [Concomitant]
     Route: 048
     Dates: start: 20060217, end: 20070316
  16. BENALAPRIL [Concomitant]
     Route: 048
     Dates: start: 20060217, end: 20070316
  17. AMLOPIN [Concomitant]
     Route: 048
     Dates: start: 20060217, end: 20070316
  18. KETONAL [Concomitant]
     Indication: ARTHRALGIA
     Route: 048
  19. PARACETAMOL [Concomitant]
     Indication: ARTHRALGIA
     Route: 048
     Dates: start: 20060620, end: 20070305
  20. FUROSEMIDE [Concomitant]
     Indication: OEDEMA
     Route: 048
     Dates: start: 20061024, end: 20070305
  21. KALIPOZ [Concomitant]
     Indication: HYPOKALAEMIA
     Route: 048
     Dates: start: 20061010, end: 20070316
  22. ZYRTEC [Concomitant]
     Indication: CONJUNCTIVITIS
     Route: 048
     Dates: start: 20061107, end: 20061113
  23. SULFACETAMIDE [Concomitant]
     Indication: CONJUNCTIVITIS
     Dates: start: 20061107, end: 20061113

REACTIONS (1)
  - SINUSITIS [None]
